FAERS Safety Report 20605346 (Version 1)
Quarter: 2022Q1

REPORT INFORMATION
  Report Type: Spontaneous
  Country: AU (occurrence: AU)
  Receive Date: 20220317
  Receipt Date: 20220317
  Transmission Date: 20220423
  Serious: Yes (Other)
  Sender: FDA-Public Use
  Company Number: AU-NOVARTISPH-NVSC2022AU059827

PATIENT
  Age: 34 Year
  Sex: Female

DRUGS (35)
  1. COSENTYX [Suspect]
     Active Substance: SECUKINUMAB
     Indication: Psoriatic arthropathy
     Dosage: 300 MG, QMO
     Route: 065
     Dates: start: 20210309
  2. COSENTYX [Suspect]
     Active Substance: SECUKINUMAB
     Indication: Pustular psoriasis
  3. COSENTYX [Suspect]
     Active Substance: SECUKINUMAB
     Indication: Hidradenitis
  4. METFORMIN [Suspect]
     Active Substance: METFORMIN HYDROCHLORIDE
     Indication: Psoriatic arthropathy
     Dosage: UNK
     Route: 065
  5. METFORMIN [Suspect]
     Active Substance: METFORMIN HYDROCHLORIDE
     Indication: Pustular psoriasis
  6. METFORMIN [Suspect]
     Active Substance: METFORMIN HYDROCHLORIDE
     Indication: Hidradenitis
  7. RABEPRAZOLE [Suspect]
     Active Substance: RABEPRAZOLE
     Indication: Psoriatic arthropathy
     Dosage: UNK
     Route: 065
  8. RABEPRAZOLE [Suspect]
     Active Substance: RABEPRAZOLE
     Indication: Pustular psoriasis
  9. RABEPRAZOLE [Suspect]
     Active Substance: RABEPRAZOLE
     Indication: Hidradenitis
  10. PREGABALIN [Suspect]
     Active Substance: PREGABALIN
     Indication: Psoriatic arthropathy
     Dosage: UNK
     Route: 065
  11. PREGABALIN [Suspect]
     Active Substance: PREGABALIN
     Indication: Pustular psoriasis
  12. PREGABALIN [Suspect]
     Active Substance: PREGABALIN
     Indication: Hidradenitis
  13. CLINDAMYCIN [Suspect]
     Active Substance: CLINDAMYCIN
     Indication: Psoriatic arthropathy
     Dosage: UNK
     Route: 065
  14. CLINDAMYCIN [Suspect]
     Active Substance: CLINDAMYCIN
     Indication: Pustular psoriasis
  15. CLINDAMYCIN [Suspect]
     Active Substance: CLINDAMYCIN
     Indication: Hidradenitis
  16. ESCITALOPRAM [Suspect]
     Active Substance: ESCITALOPRAM OXALATE
     Indication: Psoriatic arthropathy
     Dosage: UNK
     Route: 065
  17. ESCITALOPRAM [Suspect]
     Active Substance: ESCITALOPRAM OXALATE
     Indication: Pustular psoriasis
  18. ESCITALOPRAM [Suspect]
     Active Substance: ESCITALOPRAM OXALATE
     Indication: Hidradenitis
  19. FEXOFENADINE [Suspect]
     Active Substance: FEXOFENADINE HYDROCHLORIDE
     Indication: Psoriatic arthropathy
     Dosage: UNK
     Route: 065
  20. FEXOFENADINE [Suspect]
     Active Substance: FEXOFENADINE HYDROCHLORIDE
     Indication: Pustular psoriasis
  21. SULFASALAZINE [Suspect]
     Active Substance: SULFASALAZINE
     Indication: Psoriatic arthropathy
     Dosage: UNK
     Route: 065
  22. SULFASALAZINE [Suspect]
     Active Substance: SULFASALAZINE
     Indication: Pustular psoriasis
  23. SULFASALAZINE [Suspect]
     Active Substance: SULFASALAZINE
     Indication: Hidradenitis
  24. PROGESTERONE [Suspect]
     Active Substance: PROGESTERONE
     Indication: Psoriatic arthropathy
     Dosage: UNK (ONLY MINI PILL)
     Route: 065
  25. PROGESTERONE [Suspect]
     Active Substance: PROGESTERONE
     Indication: Pustular psoriasis
  26. PROGESTERONE [Suspect]
     Active Substance: PROGESTERONE
     Indication: Hidradenitis
  27. PIZOTYLINE [Suspect]
     Active Substance: PIZOTYLINE
     Indication: Psoriatic arthropathy
     Dosage: UNK
     Route: 065
  28. PIZOTYLINE [Suspect]
     Active Substance: PIZOTYLINE
     Indication: Pustular psoriasis
  29. PIZOTYLINE [Suspect]
     Active Substance: PIZOTYLINE
     Indication: Hidradenitis
  30. DIAZEPAM [Suspect]
     Active Substance: DIAZEPAM
     Indication: Psoriatic arthropathy
     Dosage: UNK UNK, PRN
     Route: 065
  31. DIAZEPAM [Suspect]
     Active Substance: DIAZEPAM
     Indication: Pustular psoriasis
  32. DIAZEPAM [Suspect]
     Active Substance: DIAZEPAM
     Indication: Hidradenitis
  33. PREDNISOLONE [Suspect]
     Active Substance: PREDNISOLONE
     Indication: Psoriatic arthropathy
     Dosage: UNK
     Route: 065
  34. PREDNISOLONE [Suspect]
     Active Substance: PREDNISOLONE
     Indication: Pustular psoriasis
  35. PREDNISOLONE [Suspect]
     Active Substance: PREDNISOLONE
     Indication: Hidradenitis

REACTIONS (5)
  - Condition aggravated [Unknown]
  - Hidradenitis [Unknown]
  - Infection [Unknown]
  - Tonsillitis [Unknown]
  - Lower respiratory tract infection [Unknown]

NARRATIVE: CASE EVENT DATE: 20210717
